FAERS Safety Report 21550926 (Version 1)
Quarter: 2022Q4

REPORT INFORMATION
  Report Type: Spontaneous
  Country: None (occurrence: GB)
  Receive Date: 20221103
  Receipt Date: 20221103
  Transmission Date: 20230113
  Serious: Yes (Hospitalization, Other)
  Sender: FDA-Public Use
  Company Number: GB-B.Braun Medical Inc.-2134483

PATIENT
  Age: 7 Year
  Sex: Female
  Weight: 21 kg

DRUGS (10)
  1. ACETAMINOPHEN [Suspect]
     Active Substance: ACETAMINOPHEN
  2. ALFENTANIL [Suspect]
     Active Substance: ALFENTANIL
  3. CLOBAZAM [Suspect]
     Active Substance: CLOBAZAM
  4. CLONIDINE [Suspect]
     Active Substance: CLONIDINE
  5. MIDAZOLAM [Suspect]
     Active Substance: MIDAZOLAM
  6. MELATONIN [Suspect]
     Active Substance: MELATONIN
  7. NITROUS OXIDE [Suspect]
     Active Substance: NITROUS OXIDE
  8. PROPOFOL [Suspect]
     Active Substance: PROPOFOL
  9. ZONISAMIDE [Suspect]
     Active Substance: ZONISAMIDE
  10. SEVOFLURANE [Suspect]
     Active Substance: SEVOFLURANE

REACTIONS (3)
  - Epilepsy with myoclonic-atonic seizures [Not Recovered/Not Resolved]
  - Change in seizure presentation [Not Recovered/Not Resolved]
  - Off label use [Not Recovered/Not Resolved]
